FAERS Safety Report 8024197-X (Version None)
Quarter: 2012Q1

REPORT INFORMATION
  Report Type: 
  Country: None (occurrence: None)
  Receive Date: 20120105
  Receipt Date: 20120102
  Transmission Date: 20120608
  Serious: Yes (Other)
  Sender: FDA-Public Use
  Company Number: PHEH2012US000537

PATIENT
  Sex: Female

DRUGS (1)
  1. GILENYA [Suspect]
     Dosage: 0.5 MG, QD
     Route: 048
     Dates: start: 20110616

REACTIONS (7)
  - DIZZINESS [None]
  - HYPOAESTHESIA [None]
  - SEIZURE LIKE PHENOMENA [None]
  - FATIGUE [None]
  - DYSARTHRIA [None]
  - BLOOD GLUCOSE DECREASED [None]
  - EYELID PTOSIS [None]
